FAERS Safety Report 19620032 (Version 2)
Quarter: 2021Q3

REPORT INFORMATION
  Report Type: Report from Study
  Country: None (occurrence: CR)
  Receive Date: 20210727
  Receipt Date: 20210729
  Transmission Date: 20211014
  Serious: Yes (Hospitalization, Other)
  Sender: FDA-Public Use
  Company Number: CR-ABBVIE-21K-039-3795259-00

PATIENT
  Age: 41 Year
  Sex: Female
  Weight: 75 kg

DRUGS (1)
  1. HUMIRA [Suspect]
     Active Substance: ADALIMUMAB
     Indication: HIDRADENITIS
     Route: 058
     Dates: start: 20200527, end: 20210301

REACTIONS (11)
  - Adverse drug reaction [Not Recovered/Not Resolved]
  - Hidradenitis [Not Recovered/Not Resolved]
  - Postoperative wound infection [Recovering/Resolving]
  - Arthralgia [Not Recovered/Not Resolved]
  - Procedural complication [Recovered/Resolved]
  - Depression [Not Recovered/Not Resolved]
  - Drug ineffective [Unknown]
  - Postoperative abscess [Recovering/Resolving]
  - Pain in extremity [Not Recovered/Not Resolved]
  - Impaired healing [Recovering/Resolving]
  - COVID-19 [Unknown]

NARRATIVE: CASE EVENT DATE: 2020
